FAERS Safety Report 9965371 (Version 1)
Quarter: 2014Q1

REPORT INFORMATION
  Report Type: Report from Study
  Country: US (occurrence: US)
  Receive Date: 20140305
  Receipt Date: 20140305
  Transmission Date: 20141002
  Serious: No
  Sender: FDA-Public Use
  Company Number: US-ABBVIE-13P-163-1125324-00

PATIENT
  Age: 30 Year
  Sex: Female
  Weight: 126.21 kg

DRUGS (3)
  1. HUMIRA [Suspect]
     Indication: PSORIASIS
     Dosage: LOADING DOSE
     Route: 058
     Dates: start: 20130630, end: 20130630
  2. HUMIRA [Suspect]
     Route: 058
     Dates: start: 20130712
  3. IBUPROFEN [Concomitant]
     Indication: PAIN
     Dosage: PRN

REACTIONS (2)
  - Ligament sprain [Recovering/Resolving]
  - Arthralgia [Recovered/Resolved]
